FAERS Safety Report 8586364-6 (Version None)
Quarter: 2012Q3

REPORT INFORMATION
  Report Type: 
  Country: None (occurrence: None)
  Receive Date: 20120810
  Receipt Date: 20120801
  Transmission Date: 20120928
  Serious: Yes (Disabling, Other)
  Sender: FDA-Public Use
  Company Number: US-009507513-1208USA000206

PATIENT

DRUGS (2)
  1. RECLAST [Suspect]
     Dosage: UNK
     Dates: start: 19990101, end: 20110601
  2. FOSAMAX [Suspect]
     Dosage: UNK
     Route: 048
     Dates: start: 19990101, end: 20110601

REACTIONS (1)
  - FEMUR FRACTURE [None]
